FAERS Safety Report 4990123-0 (Version None)
Quarter: 2006Q2

REPORT INFORMATION
  Report Type: 
  Country: None (occurrence: None)
  Receive Date: 20060503
  Receipt Date: 20051205
  Transmission Date: 20061013
  Serious: Yes (Hospitalization)
  Sender: FDA-Public Use
  Company Number: US-MERCK-0512USA00817

PATIENT
  Age: 48 Year
  Sex: Male
  Weight: 134 kg

DRUGS (13)
  1. VIOXX [Suspect]
     Indication: PAIN
     Route: 048
     Dates: start: 20000911, end: 20021109
  2. VIOXX [Suspect]
     Route: 048
  3. VIOXX [Suspect]
     Indication: OSTEOARTHRITIS
     Route: 048
     Dates: start: 20000911, end: 20021109
  4. VIOXX [Suspect]
     Route: 048
  5. HYDROCODONE BITARTRATE [Concomitant]
     Indication: PAIN
     Route: 065
     Dates: start: 20000911, end: 20020101
  6. HYDROCODONE BITARTRATE [Concomitant]
     Indication: OSTEOARTHRITIS
     Route: 065
     Dates: start: 20000911, end: 20020101
  7. METRONIDAZOLE [Concomitant]
     Indication: BACTERIAL INFECTION
     Route: 065
  8. PRILOSEC [Concomitant]
     Indication: DYSPEPSIA
     Route: 065
  9. PRILOSEC [Concomitant]
     Indication: GASTROOESOPHAGEAL REFLUX DISEASE
     Route: 065
  10. PROCHLORPERAZINE [Concomitant]
     Indication: NAUSEA
     Route: 065
  11. PREDNISONE [Concomitant]
     Indication: PAIN
     Route: 065
     Dates: start: 20020922
  12. PREDNISONE [Concomitant]
     Indication: OSTEOARTHRITIS
     Route: 065
     Dates: start: 20020922
  13. SULFAMETHOXAZOLE AND TRIMETHOPRIM [Concomitant]
     Indication: BACTERIAL INFECTION
     Route: 065

REACTIONS (4)
  - BLOOD CHOLESTEROL INCREASED [None]
  - DIABETES MELLITUS [None]
  - PULMONARY EMBOLISM [None]
  - SLEEP APNOEA SYNDROME [None]
